FAERS Safety Report 25980379 (Version 2)
Quarter: 2025Q4

REPORT INFORMATION
  Report Type: Spontaneous
  Country: EU (occurrence: EU)
  Receive Date: 20251030
  Receipt Date: 20251125
  Transmission Date: 20260119
  Serious: Yes (Other)
  Sender: PFIZER
  Company Number: None

PATIENT
  Age: 37 Year
  Sex: Female
  Weight: 70 kg

DRUGS (2)
  1. HYDROCORTISONE ACETATE [Suspect]
     Active Substance: HYDROCORTISONE ACETATE
     Indication: Eczema
     Dosage: MULTIPLE TUBES SPREAD OVER 25 YEARS ON AND OFF
     Route: 003
     Dates: start: 19980101, end: 202403
  2. BETAMETHASONE [Suspect]
     Active Substance: BETAMETHASONE
     Indication: Eczema
     Dosage: AROUND 5 YEARS ON AND OFF
     Route: 003
     Dates: start: 20180101, end: 202403

REACTIONS (9)
  - Topical steroid withdrawal reaction [Not Recovered/Not Resolved]
  - Erythema [Not Recovered/Not Resolved]
  - Skin burning sensation [Not Recovered/Not Resolved]
  - Pruritus [Not Recovered/Not Resolved]
  - Skin exfoliation [Not Recovered/Not Resolved]
  - Chills [Not Recovered/Not Resolved]
  - Skin weeping [Not Recovered/Not Resolved]
  - Alopecia [Not Recovered/Not Resolved]
  - Skin infection [Not Recovered/Not Resolved]
